FAERS Safety Report 15366693 (Version 3)
Quarter: 2018Q3

REPORT INFORMATION
  Report Type: Report from Study
  Country: JP (occurrence: JP)
  Receive Date: 20180910
  Receipt Date: 20180919
  Transmission Date: 20181010
  Serious: Yes (Hospitalization)
  Sender: FDA-Public Use
  Company Number: JP-PFIZER INC-2017143815

PATIENT
  Age: 50 Year
  Sex: Male
  Weight: 66.4 kg

DRUGS (20)
  1. PEMBROLIZUMAB. [Suspect]
     Active Substance: PEMBROLIZUMAB
     Indication: RENAL CELL CARCINOMA
     Dosage: 200 MG, Q3W (VOLUME OF INFUSION: 108 ML)
     Route: 042
     Dates: start: 20170215, end: 20170215
  2. RINDERON V [Concomitant]
     Active Substance: BETAMETHASONE VALERATE
     Dosage: 1 DF, UNK
     Dates: start: 20161230
  3. HEPARINOID [Concomitant]
     Active Substance: CHONDROITIN SULFATE (BOVINE)
     Dosage: 1 DF, UNK
     Dates: start: 20170311
  4. EURAX [Concomitant]
     Active Substance: CROTAMITON
     Dosage: 1 DF, UNK
     Dates: start: 20170309
  5. FEBURIC [Concomitant]
     Active Substance: FEBUXOSTAT
     Dosage: 20 MG, UNK
     Dates: start: 201101
  6. LENDORMIN D [Concomitant]
     Active Substance: BROTIZOLAM
     Dosage: 0.5 DF, UNK
     Dates: start: 200701
  7. AZUNOL [Concomitant]
     Active Substance: SODIUM GUALENATE
     Indication: STOMATITIS
     Dosage: 1 DF, UNK
     Route: 048
     Dates: start: 20170227
  8. PEMBROLIZUMAB. [Suspect]
     Active Substance: PEMBROLIZUMAB
     Dosage: 200 MG, Q3W
     Route: 042
     Dates: start: 20170308, end: 20170308
  9. PEMBROLIZUMAB. [Suspect]
     Active Substance: PEMBROLIZUMAB
     Dosage: 200 MG, Q3W
     Route: 042
     Dates: start: 20170502
  10. SUVENYL [Concomitant]
     Active Substance: HYALURONATE SODIUM
     Dosage: 1 DF, UNK
     Dates: start: 20170123
  11. AXITINIB [Suspect]
     Active Substance: AXITINIB
     Indication: RENAL CELL CARCINOMA
     Dosage: 5 MG, 2X/DAY (STARTING DOSE AT 5 MG BID, FLUCTUATED DOSES)
     Route: 048
     Dates: start: 20170215, end: 20170307
  12. AXITINIB [Suspect]
     Active Substance: AXITINIB
     Dosage: 5 MG, 2X/DAY (STARTING DOSE AT 5 MG BID, FLUCTUATED DOSES)
     Route: 048
     Dates: start: 20170329
  13. URALYT [Concomitant]
     Active Substance: POTASSIUM CITRATE\TRISODIUM CITRATE DIHYDRATE
     Dosage: 1 DF, UNK
     Dates: start: 200701
  14. REBAMIPIDE [Concomitant]
     Active Substance: REBAMIPIDE
     Dosage: 100 MG, UNK
     Dates: start: 20170319
  15. HANGESHASHINTO [Concomitant]
     Active Substance: HERBALS
     Dosage: 2.5 G, UNK
     Dates: start: 20170309, end: 20171013
  16. AXITINIB [Suspect]
     Active Substance: AXITINIB
     Dosage: 5 MG, 2X/DAY (STARTING DOSE AT 5 MG BID, FLUCTUATED DOSES)
     Route: 048
     Dates: start: 20170308, end: 20170328
  17. LOXOPROFEN SODIUM [Concomitant]
     Active Substance: LOXOPROFEN SODIUM
     Indication: PYREXIA
     Dosage: 60 MG, UNK
     Dates: start: 20170319
  18. BESOFTEN [Concomitant]
     Active Substance: PENTOSAN POLYSULFATE SODIUM
     Dosage: 1 DF, UNK
     Dates: start: 20170227
  19. BETNOVAL G [Concomitant]
     Dosage: 1 DF, UNK
     Dates: start: 20170227
  20. ALLERMIST [Concomitant]
     Active Substance: FLUTICASONE FUROATE
     Dosage: 4 DF, UNK
     Dates: start: 20170309

REACTIONS (1)
  - Enterocolitis [Recovered/Resolved]

NARRATIVE: CASE EVENT DATE: 20170322
